FAERS Safety Report 7864463-1 (Version None)
Quarter: 2011Q4

REPORT INFORMATION
  Report Type: 
  Country: None (occurrence: None)
  Receive Date: 20111028
  Receipt Date: 20111018
  Transmission Date: 20120403
  Serious: Yes (Hospitalization, Other)
  Sender: FDA-Public Use
  Company Number: US-JNJFOC-20110906797

PATIENT
  Sex: Female
  Weight: 60.78 kg

DRUGS (3)
  1. LABETALOL HCL [Concomitant]
     Indication: HYPERTENSION
  2. MULTI-VITAMINS [Concomitant]
     Indication: PREGNANCY
  3. REMICADE [Suspect]
     Indication: PSORIATIC ARTHROPATHY
     Route: 042
     Dates: end: 20110808

REACTIONS (4)
  - GESTATIONAL HYPERTENSION [None]
  - CAESAREAN SECTION [None]
  - PREMATURE DELIVERY [None]
  - MATERNAL EXPOSURE DURING PREGNANCY [None]
